FAERS Safety Report 7921059-0 (Version None)
Quarter: 2011Q4

REPORT INFORMATION
  Report Type: 
  Country: None (occurrence: None)
  Receive Date: 20111117
  Receipt Date: 20111115
  Transmission Date: 20120403
  Serious: Yes (Hospitalization, Disabling)
  Sender: FDA-Public Use
  Company Number: US-MERCK-1109USA01510

PATIENT
  Age: 61 Year
  Sex: Female

DRUGS (4)
  1. FOSAMAX [Suspect]
     Indication: OSTEOPOROSIS
     Route: 048
     Dates: start: 20000417, end: 20021230
  2. FOSAMAX [Suspect]
     Indication: OSTEOPENIA
     Route: 048
     Dates: start: 20000417, end: 20021230
  3. FOSAMAX [Suspect]
     Route: 048
     Dates: start: 20060710, end: 20100611
  4. FOSAMAX [Suspect]
     Route: 048
     Dates: start: 20060710, end: 20100611

REACTIONS (7)
  - FOOT FRACTURE [None]
  - LOW TURNOVER OSTEOPATHY [None]
  - STRESS FRACTURE [None]
  - BURSITIS [None]
  - FEMUR FRACTURE [None]
  - HYPERTENSION [None]
  - OSTEOPOROSIS [None]
